FAERS Safety Report 5399075-5 (Version None)
Quarter: 2007Q3

REPORT INFORMATION
  Report Type: 
  Country: None (occurrence: None)
  Receive Date: 20070727
  Receipt Date: 20061027
  Transmission Date: 20080115
  Serious: No
  Sender: FDA-Public Use
  Company Number: A0603425A

PATIENT
  Age: 41 Year
  Sex: Female
  Weight: 90.9 kg

DRUGS (4)
  1. LOTRONEX [Suspect]
     Indication: ABDOMINAL PAIN
     Route: 048
     Dates: start: 20000427, end: 20001201
  2. LIBRAX [Concomitant]
  3. XANAX [Concomitant]
  4. PRILOSEC [Concomitant]

REACTIONS (5)
  - ABDOMINAL PAIN [None]
  - DIARRHOEA [None]
  - GASTROINTESTINAL INJURY [None]
  - NAUSEA [None]
  - VOMITING [None]
